FAERS Safety Report 26184872 (Version 1)
Quarter: 2025Q4

REPORT INFORMATION
  Report Type: Spontaneous
  Country: EU (occurrence: EU)
  Receive Date: 20251222
  Receipt Date: 20251222
  Transmission Date: 20260117
  Serious: Yes (Hospitalization)
  Sender: AUROBINDO
  Company Number: EU-STADA-01507978

PATIENT
  Age: 19 Year
  Sex: Female

DRUGS (5)
  1. OLANZAPINE [Interacting]
     Active Substance: OLANZAPINE
     Indication: Psychotic disorder
     Dosage: 5 MILLIGRAM, TWO TIMES A DAY
     Route: 065
  2. ARIPIPRAZOLE [Interacting]
     Active Substance: ARIPIPRAZOLE
     Indication: Psychotic disorder
     Dosage: 5 MILLIGRAM, ONCE A DAY
     Route: 065
  3. FLUOXETINE [Interacting]
     Active Substance: FLUOXETINE HYDROCHLORIDE
     Indication: Psychotic disorder
     Dosage: UNK
     Route: 065
  4. HALOPERIDOL [Interacting]
     Active Substance: HALOPERIDOL
     Indication: Psychotic disorder
     Dosage: 5 MILLIGRAM
     Route: 065
  5. FLUVOXAMINE [Interacting]
     Active Substance: FLUVOXAMINE
     Indication: Psychotic disorder
     Dosage: 100 MILLIGRAM, ONCE A DAY
     Route: 065

REACTIONS (2)
  - Torticollis [Recovering/Resolving]
  - Drug interaction [Recovering/Resolving]
